FAERS Safety Report 19856126 (Version 1)
Quarter: 2021Q3

REPORT INFORMATION
  Report Type: Spontaneous
  Country: DE (occurrence: DE)
  Receive Date: 20210920
  Receipt Date: 20210920
  Transmission Date: 20211014
  Serious: Yes (Hospitalization)
  Sender: FDA-Public Use
  Company Number: DE-TEVA-2021-DE-1952781

PATIENT
  Age: 88 Year
  Sex: Female

DRUGS (10)
  1. DULOXETIN?1A PHARMA 30MG [Concomitant]
     Dosage: 30 MILLIGRAM DAILY; 1?0?0?0
     Route: 048
  2. MIANSERIN [Concomitant]
     Active Substance: MIANSERIN
     Route: 048
  3. BISOPROLOL [Concomitant]
     Active Substance: BISOPROLOL
     Dosage: 5 MILLIGRAM DAILY;  1?0?0?0
     Route: 048
  4. ZOLPIDEM [Concomitant]
     Active Substance: ZOLPIDEM TARTRATE
     Dosage: .5 DOSAGE FORMS DAILY; 10 MG, 0?0?0?0.5
     Route: 048
  5. CANDESARTAN. [Concomitant]
     Active Substance: CANDESARTAN
     Dosage: 8 MG
     Route: 048
  6. LATANOPROST. [Concomitant]
     Active Substance: LATANOPROST
     Dosage: 1 DOSAGE FORMS DAILY; 0?0?0?1
     Route: 031
  7. MELPERON?CT 25MG/5ML LOSUNG [Concomitant]
     Dosage: 25 | 5 MG / ML, IF NECESSARY
     Route: 048
  8. LEVOTHYROXINE SODIUM. [Concomitant]
     Active Substance: LEVOTHYROXINE SODIUM
     Dosage: .75 DOSAGE FORMS DAILY; 100 MCG, 0.75?0?0?0
     Route: 048
  9. SPIRONOLACTONE. [Suspect]
     Active Substance: SPIRONOLACTONE
     Dosage: 50 MG
     Route: 048
  10. DORZOCOMP?VISION SINE 20 MG/ML + 5MG/ML, AUGENTROPFEN [Concomitant]
     Dosage: 2 DOSAGE FORMS DAILY; 5|2, 1?0?1?0
     Route: 031

REACTIONS (4)
  - Product monitoring error [Unknown]
  - Nausea [Unknown]
  - Psychomotor retardation [Unknown]
  - Abdominal pain [Unknown]
